FAERS Safety Report 22055179 (Version 2)
Quarter: 2023Q2

REPORT INFORMATION
  Report Type: Report from Study
  Country: TW (occurrence: None)
  Receive Date: 20230302
  Receipt Date: 20230414
  Transmission Date: 20230722
  Serious: Yes (Hospitalization)
  Sender: FDA-Public Use
  Company Number: 2023A045050

PATIENT
  Age: 63 Year
  Sex: Female

DRUGS (1)
  1. IMFINZI [Suspect]
     Active Substance: DURVALUMAB
     Dosage: 480.0MG UNKNOWN
     Route: 042
     Dates: start: 20221130

REACTIONS (2)
  - Altered state of consciousness [Unknown]
  - Discomfort [Unknown]
